FAERS Safety Report 9967131 (Version 1)
Quarter: 2014Q1

REPORT INFORMATION
  Report Type: Spontaneous
  Country: DE (occurrence: DE)
  Receive Date: 20140305
  Receipt Date: 20140305
  Transmission Date: 20141002
  Serious: Yes (Congenital Anomaly)
  Sender: FDA-Public Use
  Company Number: DE-MYLANLABS-2014S1003823

PATIENT
  Age: 1 Day
  Sex: Female
  Weight: 4.03 kg

DRUGS (2)
  1. METHOTREXATE [Suspect]
     Indication: PSORIASIS
     Dosage: 15 [MG/WK (VATER) ]
     Route: 064
     Dates: start: 20120910, end: 20130617
  2. FOLIC ACID [Concomitant]
     Dosage: 5 [MG/D (MUTTER) ]
     Route: 064
     Dates: end: 20130617

REACTIONS (3)
  - Deafness congenital [Not Recovered/Not Resolved]
  - Large for dates baby [Unknown]
  - Exposure via father [Recovered/Resolved]
